FAERS Safety Report 4896798-9 (Version None)
Quarter: 2006Q1

REPORT INFORMATION
  Report Type: 
  Country: None (occurrence: None)
  Receive Date: 20060126
  Receipt Date: 20060119
  Transmission Date: 20060701
  Serious: Yes (Hospitalization, Other)
  Sender: FDA-Public Use
  Company Number: CIP05002739

PATIENT
  Age: 73 Year
  Sex: Female

DRUGS (4)
  1. ACTONEL [Suspect]
     Indication: OSTEOPOROSIS
     Dosage: 35 MG ONE ONLY, ORAL
     Route: 048
     Dates: start: 20051118, end: 20051118
  2. CALTRATE (CALCIUM CARBONATE) [Concomitant]
  3. VAGIFEM [Concomitant]
  4. CALTRATE (CALCIUM CARBONATE), VAGIFEM (ESTRADIOL) [Concomitant]

REACTIONS (3)
  - CHEST PAIN [None]
  - SYNCOPE [None]
  - VOMITING [None]
